FAERS Safety Report 5636162-8 (Version None)
Quarter: 2008Q1

REPORT INFORMATION
  Report Type: 
  Country: None (occurrence: None)
  Receive Date: 20080220
  Receipt Date: 20080220
  Transmission Date: 20080703
  Serious: Yes (Life-Threatening, Hospitalization)
  Sender: FDA-Public Use
  Company Number: None

PATIENT
  Sex: Male
  Weight: 64.3201 kg

DRUGS (2)
  1. LEVAQUIN [Suspect]
     Indication: INCISION SITE INFECTION
     Dosage: 750MG DAILY PO
     Route: 048
     Dates: start: 20071123, end: 20071127
  2. LEVAQUIN [Suspect]
     Dosage: 750MG DAILY PO
     Route: 048
     Dates: start: 20071116, end: 20071121

REACTIONS (3)
  - ABDOMINAL PAIN [None]
  - LIVER FUNCTION TEST ABNORMAL [None]
  - RASH [None]
